FAERS Safety Report 18983312 (Version 2)
Quarter: 2021Q1

REPORT INFORMATION
  Report Type: Spontaneous
  Country: US (occurrence: US)
  Receive Date: 20210309
  Receipt Date: 20210325
  Transmission Date: 20210420
  Serious: Yes (Hospitalization, Other)
  Sender: FDA-Public Use
  Company Number: US-AUROBINDO-AUR-APL-2021-008916

PATIENT
  Age: 39 Year
  Sex: Male

DRUGS (1)
  1. SILDENAFIL. [Suspect]
     Active Substance: SILDENAFIL
     Indication: ERECTILE DYSFUNCTION
     Dosage: UNK
     Route: 065

REACTIONS (5)
  - Ischaemia [Recovered/Resolved]
  - Thrombosis corpora cavernosa [Recovered/Resolved]
  - Substance use [Recovered/Resolved]
  - Off label use [Recovered/Resolved]
  - Drug abuse [Recovered/Resolved]
